FAERS Safety Report 7644019-6 (Version None)
Quarter: 2011Q3

REPORT INFORMATION
  Report Type: 
  Country: None (occurrence: None)
  Receive Date: 20110729
  Receipt Date: 20110726
  Transmission Date: 20111222
  Serious: Yes (Life-Threatening, Other)
  Sender: FDA-Public Use
  Company Number: NL-PFIZER INC-2011170463

PATIENT
  Age: 64 Year
  Sex: Male

DRUGS (7)
  1. METFORMINE ^MERCK^ [Concomitant]
     Dosage: UNK
  2. OMEPRAZOLE [Concomitant]
  3. GLIMEPIRIDE [Concomitant]
  4. LIPITOR [Suspect]
     Dosage: 20 MG, 1X/DAY
     Dates: start: 20060507
  5. FLUVOXAMINE MALEATE [Concomitant]
  6. DIOVAN [Concomitant]
     Dosage: UNK
  7. ACETYLSALICYLIC ACID [Concomitant]

REACTIONS (2)
  - ORGANISING PNEUMONIA [None]
  - LUNG DISORDER [None]
